FAERS Safety Report 6004079-5 (Version None)
Quarter: 2008Q4

REPORT INFORMATION
  Report Type: 
  Country: None (occurrence: None)
  Receive Date: 20081216
  Receipt Date: 20081215
  Transmission Date: 20090506
  Serious: Yes (Other)
  Sender: FDA-Public Use
  Company Number: D0059879A

PATIENT
  Sex: Female

DRUGS (4)
  1. PAROXETINE HCL [Suspect]
     Route: 048
     Dates: start: 20081215, end: 20081215
  2. ATOSIL [Suspect]
     Route: 048
     Dates: start: 20081215, end: 20081215
  3. LORAZEPAM [Suspect]
     Route: 048
     Dates: start: 20081215, end: 20081215
  4. TOPAMAX [Suspect]
     Route: 048
     Dates: start: 20081215, end: 20081215

REACTIONS (3)
  - INTENTIONAL OVERDOSE [None]
  - SOMNOLENCE [None]
  - SUICIDE ATTEMPT [None]
